FAERS Safety Report 7463436-0 (Version None)
Quarter: 2011Q2

REPORT INFORMATION
  Report Type: 
  Country: None (occurrence: None)
  Receive Date: 20110506
  Receipt Date: 20110104
  Transmission Date: 20111010
  Serious: Yes (Hospitalization, Disabling)
  Sender: FDA-Public Use
  Company Number: B0716812A

PATIENT
  Sex: Female

DRUGS (1)
  1. AVANDIA [Suspect]
     Route: 065
     Dates: start: 20060901, end: 20080101

REACTIONS (5)
  - MALAISE [None]
  - WEIGHT INCREASED [None]
  - DYSPNOEA [None]
  - ILL-DEFINED DISORDER [None]
  - NAUSEA [None]
